FAERS Safety Report 6747536-6 (Version None)
Quarter: 2010Q2

REPORT INFORMATION
  Report Type: 
  Country: None (occurrence: None)
  Receive Date: 20100528
  Receipt Date: 20100421
  Transmission Date: 20101027
  Serious: Yes (Death, Hospitalization, Other)
  Sender: FDA-Public Use
  Company Number: US-BAXTER-2009BH006545

PATIENT
  Age: 75 Year
  Sex: Male
  Weight: 75 kg

DRUGS (22)
  1. HEPARIN SODIUM INJECTION [Suspect]
     Indication: THROMBOSIS PROPHYLAXIS
     Route: 040
     Dates: start: 20060101, end: 20070401
  2. HEPARIN SODIUM INJECTION [Suspect]
     Indication: CORONARY ARTERY BYPASS
     Route: 040
     Dates: start: 20060101, end: 20070401
  3. HEPARIN SODIUM INJECTION [Suspect]
     Route: 042
     Dates: start: 20060101, end: 20070401
  4. HEPARIN SODIUM INJECTION [Suspect]
     Route: 042
     Dates: start: 20060101, end: 20070401
  5. HEPARIN SODIUM INJECTION [Suspect]
     Route: 042
     Dates: start: 20061023
  6. HEPARIN SODIUM INJECTION [Suspect]
     Route: 042
     Dates: start: 20061023
  7. HEPARIN SODIUM INJECTION [Suspect]
     Route: 042
     Dates: start: 20080206
  8. HEPARIN SODIUM INJECTION [Suspect]
     Route: 042
     Dates: start: 20080206
  9. HEPARIN SODIUM INJECTION [Suspect]
     Route: 042
     Dates: start: 20080206
  10. HEPARIN SODIUM INJECTION [Suspect]
     Route: 042
     Dates: start: 20080206
  11. COREG [Concomitant]
     Indication: DRUG USE FOR UNKNOWN INDICATION
     Route: 048
  12. LISINOPRIL [Concomitant]
     Indication: DRUG USE FOR UNKNOWN INDICATION
     Route: 048
  13. ATORVASTATIN [Concomitant]
     Indication: DRUG USE FOR UNKNOWN INDICATION
     Route: 048
  14. EPOGEN [Concomitant]
     Indication: DRUG USE FOR UNKNOWN INDICATION
     Route: 065
  15. WARFARIN SODIUM [Concomitant]
     Indication: DRUG USE FOR UNKNOWN INDICATION
     Route: 065
  16. PHOSLO [Concomitant]
     Indication: DRUG USE FOR UNKNOWN INDICATION
     Route: 048
  17. DIGOXIN [Concomitant]
     Indication: DRUG USE FOR UNKNOWN INDICATION
     Route: 048
  18. DUONEB [Concomitant]
     Indication: DRUG USE FOR UNKNOWN INDICATION
     Route: 065
  19. VANCOMYCIN [Concomitant]
     Indication: DRUG USE FOR UNKNOWN INDICATION
     Route: 065
  20. PREDNISONE TAB [Concomitant]
     Indication: DRUG USE FOR UNKNOWN INDICATION
     Route: 065
  21. WARFARIN SODIUM [Concomitant]
     Route: 048
  22. OXYGEN [Concomitant]
     Indication: DRUG USE FOR UNKNOWN INDICATION
     Route: 055

REACTIONS (25)
  - ACIDOSIS [None]
  - ASCITES [None]
  - BACTERIAL INFECTION [None]
  - BRADYCARDIA [None]
  - BRONCHITIS [None]
  - BRONCHITIS MORAXELLA [None]
  - CARDIAC ARREST [None]
  - CARDIO-RESPIRATORY ARREST [None]
  - DIZZINESS [None]
  - DYSPNOEA [None]
  - EJECTION FRACTION DECREASED [None]
  - HAEMATOMA [None]
  - HYPOTENSION [None]
  - ISCHAEMIC CARDIOMYOPATHY [None]
  - LOSS OF CONSCIOUSNESS [None]
  - NAUSEA [None]
  - PLEURAL EFFUSION [None]
  - PNEUMONIA [None]
  - PURULENT DISCHARGE [None]
  - RESPIRATORY FAILURE [None]
  - SEPSIS [None]
  - SYNCOPE [None]
  - THROMBOCYTOPENIA [None]
  - THROMBOSIS PROPHYLAXIS [None]
  - VOMITING [None]
